FAERS Safety Report 6718469-6 (Version None)
Quarter: 2010Q2

REPORT INFORMATION
  Report Type: 
  Country: None (occurrence: None)
  Receive Date: 20100510
  Receipt Date: 20100428
  Transmission Date: 20101027
  Serious: Yes (Hospitalization)
  Sender: FDA-Public Use
  Company Number: NL-ELI_LILLY_AND_COMPANY-NL201004007837

PATIENT
  Sex: Male
  Weight: 70 kg

DRUGS (4)
  1. ALIMTA [Suspect]
     Indication: MESOTHELIOMA MALIGNANT
     Dosage: 935 MG, UNK
     Route: 065
     Dates: start: 20100305, end: 20100306
  2. CISPLATINE-TEVA [Concomitant]
     Indication: MESOTHELIOMA MALIGNANT
     Dosage: 150 MG, UNKNOWN
     Route: 065
     Dates: start: 20100305, end: 20100306
  3. DEXAMETHASONE TAB [Concomitant]
     Dosage: 10 MG, UNKNOWN
     Route: 065
     Dates: start: 20100305, end: 20100307
  4. EMEND [Concomitant]
     Dosage: 135 MG, UNKNOWN
     Route: 065
     Dates: start: 20100305, end: 20100307

REACTIONS (1)
  - ACUTE MYOCARDIAL INFARCTION [None]
